FAERS Safety Report 8153869-1 (Version None)
Quarter: 2012Q1

REPORT INFORMATION
  Report Type: 
  Country: None (occurrence: None)
  Receive Date: 20120221
  Receipt Date: 20120210
  Transmission Date: 20120608
  Serious: Yes (Death, Other)
  Sender: FDA-Public Use
  Company Number: JP-ELI_LILLY_AND_COMPANY-JP201201004084

PATIENT
  Age: 82 Year
  Sex: Male

DRUGS (5)
  1. POTACOL-R [Concomitant]
     Dosage: 750 ML, UNK
     Dates: start: 20120111, end: 20120125
  2. AMINOPHYLLINE HYDRATE [Concomitant]
     Dosage: 100 MG, UNK
     Dates: start: 20120111, end: 20120125
  3. HOCHUUEKKITOU [Concomitant]
     Dosage: 7.5 G, UNK
     Dates: start: 20120111, end: 20120125
  4. CLARITHROMYCIN [Concomitant]
     Dosage: 100 MG, UNK
     Dates: start: 20120111, end: 20120125
  5. FORTEO [Suspect]
     Route: 058

REACTIONS (4)
  - ALCOHOLISM [None]
  - BLOOD URIC ACID INCREASED [None]
  - DECREASED APPETITE [None]
  - BLOOD CREATININE INCREASED [None]
